FAERS Safety Report 26198899 (Version 1)
Quarter: 2025Q4

REPORT INFORMATION
  Report Type: Spontaneous
  Country: US (occurrence: US)
  Receive Date: 20251225
  Receipt Date: 20251225
  Transmission Date: 20260118
  Serious: No
  Sender: ACCORD
  Company Number: US-Accord-462101

PATIENT

DRUGS (1)
  1. BUPROPION HYDROCHLORIDE [Suspect]
     Active Substance: BUPROPION HYDROCHLORIDE
     Route: 063

REACTIONS (3)
  - Maternal exposure during breast feeding [Unknown]
  - Constipation [Unknown]
  - Flatulence [Unknown]
